FAERS Safety Report 8668114 (Version 2)
Quarter: 2012Q4

REPORT INFORMATION
  Report Type: 
  Country: US (occurrence: US)
  Receive Date: 20120717
  Receipt Date: 20120924
  Transmission Date: 20130627
  Serious: Yes (Life-Threatening, Hospitalization)
  Sender: FDA-Public Use
  Company Number: US-BAYER-2012-070380

PATIENT
  Age: 31 Year
  Sex: Female
  Weight: 99.77 kg

DRUGS (7)
  1. YASMIN [Suspect]
     Dosage: UNK
     Dates: start: 2002, end: 2006
  2. OCELLA [Suspect]
     Dosage: UNK
     Dates: start: 200908, end: 201007
  3. VITAMIN D [Concomitant]
     Indication: HYPOVITAMINOSIS
     Dosage: 50,000 units
     Dates: start: 20100609
  4. IBUPROFEN [Concomitant]
     Indication: PAIN
     Dosage: 2-200 mg as needed
     Dates: start: 20100616
  5. HYDROCODONE W/HOMATROPINE [Concomitant]
     Indication: PAIN
     Dosage: UNK
     Dates: start: 20100616
  6. HYDROCODONE W/HOMATROPINE [Concomitant]
     Indication: COUGH
  7. CLARITHROMYCIN [Concomitant]
     Indication: PNEUMONITIS
     Dosage: 500 mg, UNK
     Dates: start: 20100616

REACTIONS (19)
  - Deep vein thrombosis [None]
  - Pulmonary embolism [None]
  - Cardiac arrest [None]
  - Injury [None]
  - Pain [None]
  - Fear [None]
  - Emotional distress [None]
  - Anhedonia [None]
  - Pain [None]
  - Traumatic lung injury [None]
  - Hypoxia [None]
  - Hypotension [None]
  - Dyspnoea [None]
  - Chest pain [None]
  - Haemorrhage [None]
  - Arthralgia [None]
  - Mental disorder [None]
  - Pulseless electrical activity [None]
  - Bradycardia [None]
